FAERS Safety Report 22101609 (Version 1)
Quarter: 2023Q1

REPORT INFORMATION
  Report Type: Spontaneous
  Country: US (occurrence: US)
  Receive Date: 20230316
  Receipt Date: 20230316
  Transmission Date: 20230417
  Serious: Yes (Hospitalization, Other)
  Sender: FDA-Public Use
  Company Number: US-AVET LIFESCIENCES LTD-2023-AVET-000073

PATIENT
  Age: 33 Year
  Sex: Male

DRUGS (20)
  1. BUSPIRONE [Suspect]
     Active Substance: BUSPIRONE HYDROCHLORIDE
     Indication: Anxiety
     Dosage: 15 MILLIGRAM, TID, NASALLY INGESTED
     Route: 045
  2. BUSPIRONE [Suspect]
     Active Substance: BUSPIRONE HYDROCHLORIDE
     Dosage: 5 MILLIGRAM, TID
     Route: 045
  3. BUSPIRONE [Suspect]
     Active Substance: BUSPIRONE HYDROCHLORIDE
     Dosage: UNK
     Route: 045
  4. VALPROIC ACID [Concomitant]
     Active Substance: VALPROIC ACID
     Dosage: 1000 MILLIGRAM, QD
  5. TRAZODONE [Concomitant]
     Active Substance: TRAZODONE HYDROCHLORIDE
     Dosage: 50 MILLIGRAM, QD
  6. GABAPENTIN [Concomitant]
     Active Substance: GABAPENTIN
     Dosage: 900 MILLIGRAM, QD
  7. QUETIAPINE [Concomitant]
     Active Substance: QUETIAPINE
     Dosage: 300 MILLIGRAM, QD
  8. QUETIAPINE [Concomitant]
     Active Substance: QUETIAPINE
     Dosage: (EXTENDED-RELEASE) 300 MILLIGRAM, QD
  9. QUETIAPINE [Concomitant]
     Active Substance: QUETIAPINE
     Dosage: (EXTENDED-RELEASE) 800 MILLIGRAM, QD
  10. PALIPERIDONE PALMITATE [Concomitant]
     Active Substance: PALIPERIDONE PALMITATE
     Dosage: 156 MILLIGRAM, EVERY 4 WEEKS
     Route: 030
  11. PALIPERIDONE PALMITATE [Concomitant]
     Active Substance: PALIPERIDONE PALMITATE
     Dosage: 234 MILLIGRAM, LONG-ACTING INJECTABLE
  12. HALOPERIDOL [Concomitant]
     Active Substance: HALOPERIDOL
     Indication: Agitation
     Dosage: UNK
     Route: 030
  13. HALOPERIDOL [Concomitant]
     Active Substance: HALOPERIDOL
     Dosage: 10 MILLIGRAM, BID
     Route: 048
  14. HALOPERIDOL [Concomitant]
     Active Substance: HALOPERIDOL
     Dosage: 30 MILLIGRAM, QD
     Route: 065
  15. LORAZEPAM [Concomitant]
     Active Substance: LORAZEPAM
     Indication: Agitation
     Route: 030
  16. DIPHENHYDRAMINE [Concomitant]
     Active Substance: DIPHENHYDRAMINE
     Indication: Agitation
     Route: 030
  17. CHLORPROMAZINE [Concomitant]
     Active Substance: CHLORPROMAZINE
     Indication: Agitation
     Dosage: 150 MILLIGRAM, QD
     Route: 048
  18. CHLORPROMAZINE [Concomitant]
     Active Substance: CHLORPROMAZINE
     Dosage: 300 MILLIGRAM, QD
     Route: 048
  19. BENZTROPINE [Concomitant]
     Active Substance: BENZTROPINE
     Dosage: 4 MILLIGRAM, QD
  20. RISPERDAL [Concomitant]
     Active Substance: RISPERIDONE
     Route: 048

REACTIONS (4)
  - Psychotic disorder [Recovering/Resolving]
  - Drug abuse [Unknown]
  - Treatment noncompliance [Unknown]
  - Product use issue [Unknown]
